FAERS Safety Report 23313392 (Version 1)
Quarter: 2023Q4

REPORT INFORMATION
  Report Type: Spontaneous
  Country: US (occurrence: US)
  Receive Date: 20231219
  Receipt Date: 20231219
  Transmission Date: 20240110
  Serious: Yes (Other)
  Sender: FDA-Public Use
  Company Number: US-PFIZER INC-202300444802

PATIENT
  Age: 61 Year
  Sex: Female

DRUGS (6)
  1. XELJANZ XR [Suspect]
     Active Substance: TOFACITINIB CITRATE
     Indication: Rheumatoid arthritis
     Dosage: 11 MG, DAILY
     Route: 048
     Dates: start: 20231120
  2. METAXALONE [Concomitant]
     Active Substance: METAXALONE
     Dosage: UNK
  3. METHIMAZOLE [Concomitant]
     Active Substance: METHIMAZOLE
     Dosage: UNK
  4. CLOBETASOL PROPIONATE [Concomitant]
     Active Substance: CLOBETASOL PROPIONATE
     Dosage: UNK
  5. TEMAZEPAM [Concomitant]
     Active Substance: TEMAZEPAM
     Dosage: UNK
  6. IBUPROFEN [Concomitant]
     Active Substance: IBUPROFEN
     Dosage: UNK

REACTIONS (10)
  - Hypothyroidism [Not Recovered/Not Resolved]
  - Urticaria [Unknown]
  - Psoriasis [Not Recovered/Not Resolved]
  - Dizziness [Unknown]
  - Palpitations [Unknown]
  - Dyspnoea [Unknown]
  - Condition aggravated [Recovered/Resolved]
  - Sensitivity to weather change [Recovered/Resolved]
  - Nausea [Unknown]
  - Diarrhoea [Unknown]

NARRATIVE: CASE EVENT DATE: 20231210
